FAERS Safety Report 23422226 (Version 1)
Quarter: 2024Q1

REPORT INFORMATION
  Report Type: Spontaneous
  Country: US (occurrence: None)
  Receive Date: 20240118
  Receipt Date: 20240118
  Transmission Date: 20240410
  Serious: No
  Sender: FDA-Public Use
  Company Number: None

PATIENT
  Sex: Female

DRUGS (1)
  1. TOBRAMYCIN INHALATION SOLUTION [Suspect]
     Active Substance: TOBRAMYCIN
     Indication: Mycobacterial infection
     Dosage: 300 MG BID INHALATION?
     Route: 055
     Dates: start: 202310

REACTIONS (2)
  - Taste disorder [None]
  - Rash pruritic [None]
